FAERS Safety Report 5062443-5 (Version None)
Quarter: 2006Q3

REPORT INFORMATION
  Report Type: 
  Country: None (occurrence: None)
  Receive Date: 20060721
  Receipt Date: 20060706
  Transmission Date: 20061208
  Serious: Yes (Other)
  Sender: FDA-Public Use
  Company Number: 2006S1006149

PATIENT
  Age: 77 Year
  Sex: Female

DRUGS (8)
  1. DEMADEX [Suspect]
     Indication: FLUID RETENTION
     Dosage: UNKNOWN, QAM; PO
     Route: 048
     Dates: start: 20060601, end: 20060705
  2. FUROSEMIDE [Suspect]
     Indication: FLUID RETENTION
     Dosage: 20 MG, X1; PO
     Route: 048
     Dates: start: 20060706, end: 20060706
  3. METHADONE HCL [Concomitant]
  4. ALPRAZOLAM [Concomitant]
  5. LEVOTHYROXINE SODIUM [Concomitant]
  6. POTASSIUM [Concomitant]
  7. LANSOPRAZOLE [Concomitant]
  8. PROPANOLOL /00030001 [Concomitant]

REACTIONS (4)
  - BLOOD POTASSIUM DECREASED [None]
  - DIZZINESS [None]
  - NAUSEA [None]
  - PALPITATIONS [None]
